FAERS Safety Report 8286558-3 (Version None)
Quarter: 2012Q2

REPORT INFORMATION
  Report Type: 
  Country: None (occurrence: None)
  Receive Date: 20120411
  Receipt Date: 20120328
  Transmission Date: 20120825
  Serious: Yes (Death)
  Sender: FDA-Public Use
  Company Number: US-2012-10382

PATIENT
  Age: 17 Year

DRUGS (4)
  1. ATG RABBIT (ANTITHYMOCYTE IMMUNOGLOBULIN) [Concomitant]
  2. FLUDARABINE PHOSPHATE [Concomitant]
  3. BUSULFAN [Suspect]
     Indication: BONE MARROW CONDITIONING REGIMEN
  4. CAMPATH [Concomitant]

REACTIONS (7)
  - GRAFT VERSUS HOST DISEASE [None]
  - MULTI-ORGAN FAILURE [None]
  - SURGICAL PROCEDURE REPEATED [None]
  - VIRAL INFECTION [None]
  - STEM CELL TRANSPLANT [None]
  - TRANSPLANT REJECTION [None]
  - TOXICITY TO VARIOUS AGENTS [None]
